FAERS Safety Report 8125283-6 (Version None)
Quarter: 2012Q1

REPORT INFORMATION
  Report Type: 
  Country: None (occurrence: None)
  Receive Date: 20120209
  Receipt Date: 20120130
  Transmission Date: 20120608
  Serious: Yes (Hospitalization, Other)
  Sender: FDA-Public Use
  Company Number: US-AMGEN-USASP2010008759

PATIENT
  Age: 65 Year
  Sex: Female

DRUGS (1)
  1. PROLIA [Suspect]
     Indication: OSTEOPOROSIS
     Dosage: 60 MG, Q6MO
     Route: 058
     Dates: start: 20101102

REACTIONS (10)
  - INFECTION [None]
  - CHRONIC OBSTRUCTIVE PULMONARY DISEASE [None]
  - DYSPNOEA [None]
  - NIGHT SWEATS [None]
  - DEEP VEIN THROMBOSIS [None]
  - ANXIETY [None]
  - PYREXIA [None]
  - OEDEMA PERIPHERAL [None]
  - PALPITATIONS [None]
  - RASH [None]
